FAERS Safety Report 7356647-6 (Version None)
Quarter: 2011Q1

REPORT INFORMATION
  Report Type: 
  Country: None (occurrence: None)
  Receive Date: 20110316
  Receipt Date: 20110307
  Transmission Date: 20110831
  Serious: Yes (Other)
  Sender: FDA-Public Use
  Company Number: PHHY2011IT18550

PATIENT
  Sex: Male

DRUGS (1)
  1. VOLTAREN [Suspect]
     Dosage: 75/3 MG/ML
     Route: 030
     Dates: start: 20110125, end: 20110125

REACTIONS (3)
  - RASH [None]
  - PETECHIAE [None]
  - OEDEMA PERIPHERAL [None]
